FAERS Safety Report 7096565-4 (Version None)
Quarter: 2010Q4

REPORT INFORMATION
  Report Type: 
  Country: None (occurrence: None)
  Receive Date: 20101111
  Receipt Date: 20101101
  Transmission Date: 20110411
  Serious: Yes (Hospitalization)
  Sender: FDA-Public Use
  Company Number: B0681360A

PATIENT
  Sex: Male

DRUGS (6)
  1. LAMICTAL [Suspect]
     Indication: EPILEPSY
     Route: 048
     Dates: start: 20100907, end: 20101020
  2. DEPAKENE [Concomitant]
     Indication: EPILEPSY
     Route: 048
     Dates: start: 20060301, end: 20101020
  3. CRESTOR [Concomitant]
     Dosage: 5MG PER DAY
     Route: 048
     Dates: start: 20090501, end: 20101020
  4. URINORM [Concomitant]
     Dosage: 50MG PER DAY
     Route: 048
     Dates: start: 20070501, end: 20101020
  5. FLOMOX [Concomitant]
     Indication: OROPHARYNGEAL PAIN
     Route: 048
     Dates: start: 20101018, end: 20101020
  6. LOXONIN [Concomitant]
     Indication: OROPHARYNGEAL PAIN
     Route: 065
     Dates: start: 20101018, end: 20101020

REACTIONS (4)
  - ERYTHEMA [None]
  - OROPHARYNGEAL PAIN [None]
  - PYREXIA [None]
  - STEVENS-JOHNSON SYNDROME [None]
